FAERS Safety Report 7321070-7 (Version None)
Quarter: 2011Q1

REPORT INFORMATION
  Report Type: 
  Country: None (occurrence: None)
  Receive Date: 20110215
  Receipt Date: 20110201
  Transmission Date: 20110831
  Serious: Yes (Other)
  Sender: FDA-Public Use
  Company Number: KR-GDP-11409936

PATIENT
  Age: 54 Year
  Sex: Male

DRUGS (1)
  1. METVIX (METHYL AMINOLEVULINATE HYDROCHLORIDE) 16 % [Suspect]
     Indication: KERATOACANTHOMA
     Dosage: (TOPICAL)
     Route: 061

REACTIONS (3)
  - KERATOACANTHOMA [None]
  - NEOPLASM PROGRESSION [None]
  - CONDITION AGGRAVATED [None]
